FAERS Safety Report 10033142 (Version 2)
Quarter: 2014Q2

REPORT INFORMATION
  Report Type: Report from Study
  Country: US (occurrence: US)
  Receive Date: 20140324
  Receipt Date: 20140423
  Transmission Date: 20141212
  Serious: Yes (Hospitalization, Other)
  Sender: FDA-Public Use
  Company Number: US-MPIJNJ-2014MPI000832

PATIENT
  Age: 86 Year
  Sex: Male
  Weight: 82 kg

DRUGS (6)
  1. VELCADE [Suspect]
     Indication: PLASMA CELL MYELOMA
     Dosage: 1.3 MG/M2, CYCLIC (ON DAY 1, 8, 15 AND 22 WITH 13 DAY REST PERIOD OF 35 DAYS CYCLE)
     Route: 058
     Dates: start: 20140220, end: 20140306
  2. VELCADE [Suspect]
     Dosage: 1.0 MG/M2, CYCLIC (ON DAY 1, 8, 15 AND 22 WITH 13 DAY REST PERIOD OF 35 DAYS CYCLE)
     Route: 058
     Dates: start: 20140327
  3. LENALIDOMIDE [Suspect]
     Indication: PLASMA CELL MYELOMA
     Dosage: 15 MG, CYCLIC (DAY 1 TO 21 FOLLOWED BY 14 DAYS REST PERIOD OF 35 DAYS CYCLE)
     Route: 048
     Dates: start: 20140220, end: 20140310
  4. LENALIDOMIDE [Suspect]
     Dosage: 10 MG, CYCLIC (DAY 1 TO 21 FOLLOWED BY 14 DAYS REST PERIOD OF 35 DAYS CYCLE)
     Route: 048
     Dates: start: 20140327
  5. DEXAMETHASONE [Suspect]
     Indication: PLASMA CELL MYELOMA
     Dosage: 20 MG, CYCLIC (ON DAY 1, 8, 15 AND 22 WITH 13 DAY REST PERIOD OF 35 DAYS CYCLE)
     Route: 048
     Dates: start: 20140220
  6. ZOLEDRONIC ACID [Concomitant]
     Dosage: UNK
     Dates: start: 20140406

REACTIONS (5)
  - Electrolyte imbalance [Recovering/Resolving]
  - Dyspnoea [Recovering/Resolving]
  - Fatigue [Recovering/Resolving]
  - Muscular weakness [Recovering/Resolving]
  - Bone marrow failure [Recovering/Resolving]
